FAERS Safety Report 17347750 (Version 1)
Quarter: 2020Q1

REPORT INFORMATION
  Report Type: Spontaneous
  Country: US (occurrence: US)
  Receive Date: 20200114
  Receipt Date: 20200114
  Transmission Date: 20200409
  Serious: Yes (Disabling)
  Sender: FDA-Public Use
  Company Number: None

PATIENT
  Age: 65 Year
  Sex: Female
  Weight: 43.09 kg

DRUGS (4)
  1. ALBUTEROL. [Concomitant]
     Active Substance: ALBUTEROL
  2. DOXYCYCLINE. [Suspect]
     Active Substance: DOXYCYCLINE
     Indication: INFECTION
     Dosage: ?          QUANTITY:2 DF DOSAGE FORM;?
     Route: 048
     Dates: start: 20191219, end: 20191221
  3. NUTRIENT 950 [Concomitant]
     Active Substance: MINERALS\VITAMINS
  4. PRO AIR HFA-ALBUTEROL SULFATE INHALER [Concomitant]

REACTIONS (9)
  - Arthralgia [None]
  - Pain in jaw [None]
  - Pain in extremity [None]
  - Peripheral swelling [None]
  - Loss of personal independence in daily activities [None]
  - Musculoskeletal pain [None]
  - Groin pain [None]
  - Back pain [None]
  - Mastication disorder [None]

NARRATIVE: CASE EVENT DATE: 20191220
